FAERS Safety Report 7985474-1 (Version None)
Quarter: 2011Q4

REPORT INFORMATION
  Report Type: 
  Country: None (occurrence: None)
  Receive Date: 20111216
  Receipt Date: 20111214
  Transmission Date: 20120403
  Serious: Yes (Hospitalization)
  Sender: FDA-Public Use
  Company Number: BR-ROCHE-1019804

PATIENT
  Sex: Female
  Weight: 86 kg

DRUGS (3)
  1. OMEPRAZOLE [Concomitant]
  2. LEVOTHYROXINE SODIUM [Concomitant]
  3. MABTHERA [Suspect]
     Indication: RHEUMATOID ARTHRITIS
     Dates: start: 20091001

REACTIONS (1)
  - BREAST CANCER [None]
